FAERS Safety Report 5567538-5 (Version None)
Quarter: 2007Q4

REPORT INFORMATION
  Report Type: 
  Country: None (occurrence: None)
  Receive Date: 20071219
  Receipt Date: 20071211
  Transmission Date: 20080405
  Serious: Yes (Other)
  Sender: FDA-Public Use
  Company Number: US-PFIZER INC-2006143521

PATIENT
  Sex: Female
  Weight: 89.8 kg

DRUGS (5)
  1. BEXTRA [Suspect]
     Indication: BACK PAIN
  2. XANAX [Concomitant]
     Indication: ANXIETY
  3. SOMA [Concomitant]
     Indication: MUSCLE SPASMS
     Dosage: TEXT:1-2 TABS
  4. BUSPAR [Concomitant]
     Indication: ANXIETY
  5. HYDROCODONE BITARTRATE + ACETAMINOPHEN [Concomitant]
     Indication: PAIN
     Dosage: TEXT:5/500 MG

REACTIONS (1)
  - STEVENS-JOHNSON SYNDROME [None]
